FAERS Safety Report 8826528 (Version 2)
Quarter: 2013Q1

REPORT INFORMATION
  Report Type: Spontaneous
  Country: BR (occurrence: BR)
  Receive Date: 20121005
  Receipt Date: 20130117
  Transmission Date: 20140127
  Serious: Yes (Other)
  Sender: FDA-Public Use
  Company Number: BR-ASTRAZENECA-2012SE75524

PATIENT
  Age: 70 Year
  Sex: Male
  Weight: 96 kg

DRUGS (5)
  1. ATACAND [Suspect]
     Indication: HYPERTENSION
     Route: 048
     Dates: start: 2009
  2. CRESTOR [Suspect]
     Indication: BLOOD CHOLESTEROL INCREASED
     Route: 048
     Dates: start: 2009, end: 20120925
  3. CRESTOR [Suspect]
     Indication: BLOOD CHOLESTEROL INCREASED
     Route: 048
  4. BRILINTA [Suspect]
     Indication: ANGINA PECTORIS
     Route: 048
     Dates: start: 201209, end: 2012
  5. PRESSAT [Concomitant]
     Route: 048

REACTIONS (2)
  - Angina pectoris [Recovered/Resolved]
  - Gastric disorder [Recovered/Resolved]
